FAERS Safety Report 4340971-5 (Version None)
Quarter: 2004Q2

REPORT INFORMATION
  Report Type: 
  Country: None (occurrence: None)
  Receive Date: 20040413
  Receipt Date: 20040331
  Transmission Date: 20050107
  Serious: Yes (Hospitalization)
  Sender: FDA-Public Use
  Company Number: BE-JNJFOC-20040400076

PATIENT
  Age: 43 Year
  Sex: Female

DRUGS (3)
  1. INFLIXIMAB (INFLIXIMAB, RECOMBINANT) LYOPHILIZED POWDER [Suspect]
     Indication: RHEUMATOID ARTHRITIS
     Dosage: 3 MG/KG, INTRAVENOUS
     Route: 042
     Dates: start: 20020627
  2. CORTICOSTEROIDS (CORTICOSTEROIDS) [Concomitant]
  3. IMMUNOSUPPRESSIVES (IMMUNOSUPPRESSIVE AGENTS) [Concomitant]

REACTIONS (1)
  - LUPUS-LIKE SYNDROME [None]
